FAERS Safety Report 8778452 (Version 1)
Quarter: 2012Q4

REPORT INFORMATION
  Report Type: Report from Study
  Country: DE (occurrence: DE)
  Receive Date: 20120912
  Receipt Date: 20120912
  Transmission Date: 20130627
  Serious: Yes (Hospitalization)
  Sender: FDA-Public Use
  Company Number: DE-GLAXOSMITHKLINE-B0824458B

PATIENT
  Age: 34 Year
  Sex: Female
  Weight: 62 kg

DRUGS (5)
  1. LAPATINIB [Suspect]
     Indication: BREAST CANCER
     Dosage: 750MG Per day
     Route: 048
     Dates: start: 20120615
  2. PACLITAXEL [Suspect]
     Indication: BREAST CANCER
     Dosage: 80MGM2 Weekly
     Route: 042
     Dates: start: 20120615
  3. TRASTUZUMAB [Suspect]
     Indication: BREAST CANCER
     Dosage: 6MGK Every 3 weeks
     Route: 042
     Dates: start: 20120615
  4. LIPOSOME ENCAPSULATED DOXORUBICIN CITRATE COMPLEX [Suspect]
     Indication: BREAST CANCER
     Dosage: 20MGM2 Weekly
     Route: 042
     Dates: start: 20120615
  5. CARBOPLATIN [Suspect]
     Indication: BREAST CANCER
     Route: 042
     Dates: start: 20120615

REACTIONS (1)
  - Anaemia [Recovered/Resolved]
